FAERS Safety Report 9123043 (Version 1)
Quarter: 2013Q1

REPORT INFORMATION
  Report Type: Spontaneous
  Country: CN (occurrence: CN)
  Receive Date: 20130115
  Receipt Date: 20130115
  Transmission Date: 20140127
  Serious: Yes (Other)
  Sender: FDA-Public Use
  Company Number: CN-ROCHE-1177975

PATIENT
  Sex: Female

DRUGS (3)
  1. XELODA [Suspect]
     Indication: RECTAL CANCER
     Route: 048
     Dates: start: 201212
  2. AVASTIN [Suspect]
     Indication: RECTAL CANCER
     Route: 065
  3. VITAMIN B6 [Concomitant]
     Indication: RECTAL CANCER
     Route: 048
     Dates: start: 201212

REACTIONS (5)
  - Metastases to lung [Unknown]
  - Erythema [Not Recovered/Not Resolved]
  - Hypoaesthesia [Not Recovered/Not Resolved]
  - Pain in extremity [Not Recovered/Not Resolved]
  - Local swelling [Not Recovered/Not Resolved]
